FAERS Safety Report 6856756-1 (Version None)
Quarter: 2010Q3

REPORT INFORMATION
  Report Type: 
  Country: None (occurrence: None)
  Receive Date: 20100719
  Receipt Date: 20100713
  Transmission Date: 20110219
  Serious: Yes (Other)
  Sender: FDA-Public Use
  Company Number: BR-SANOFI-AVENTIS-2010SA041321

PATIENT
  Age: 77 Year
  Sex: Female
  Weight: 60 kg

DRUGS (12)
  1. LANTUS [Suspect]
     Indication: TYPE 2 DIABETES MELLITUS
     Route: 058
     Dates: start: 20080101
  2. GLICLAZIDE [Concomitant]
     Indication: TYPE 2 DIABETES MELLITUS
     Route: 048
  3. ENALAPRIL MALEATE [Concomitant]
     Indication: HYPERTENSION
     Route: 048
  4. CARBIDOPA AND LEVODOPA [Concomitant]
     Indication: PARKINSON'S DISEASE
     Route: 048
  5. PAROXETINE [Concomitant]
     Indication: DEPRESSION
     Route: 048
  6. CARVEDILOL [Concomitant]
  7. RISPERIDONE [Concomitant]
     Indication: DEPRESSION
     Route: 048
  8. METFORMIN [Concomitant]
     Indication: TYPE 2 DIABETES MELLITUS
     Route: 048
  9. FRONTAL [Concomitant]
     Indication: SLEEP DISORDER
  10. LANSOPRAZOLE [Concomitant]
     Route: 048
  11. TICLOPIDINE HYDROCHLORIDE [Concomitant]
     Route: 048
  12. NOOTROPIL [Concomitant]
     Indication: PROPHYLAXIS

REACTIONS (6)
  - CEREBRAL ISCHAEMIA [None]
  - FALL [None]
  - HYPERGLYCAEMIA [None]
  - MICTURITION URGENCY [None]
  - MUSCULAR WEAKNESS [None]
  - PARKINSON'S DISEASE [None]
